FAERS Safety Report 24244136 (Version 2)
Quarter: 2024Q4

REPORT INFORMATION
  Report Type: Spontaneous
  Country: JP (occurrence: JP)
  Receive Date: 20240823
  Receipt Date: 20241003
  Transmission Date: 20250115
  Serious: Yes (Hospitalization, Other)
  Sender: ABBVIE
  Company Number: JP-ABBVIE-5886428

PATIENT
  Age: 40 Year
  Sex: Female

DRUGS (5)
  1. CARBIDOPA\LEVODOPA [Suspect]
     Active Substance: CARBIDOPA\LEVODOPA
     Indication: Parkinson^s disease
     Route: 050
  2. CARBIDOPA\LEVODOPA [Suspect]
     Active Substance: CARBIDOPA\LEVODOPA
  3. ROTIGOTINE [Concomitant]
     Active Substance: ROTIGOTINE
     Indication: Parkinson^s disease
  4. ROTIGOTINE [Concomitant]
     Active Substance: ROTIGOTINE
     Indication: Parkinson^s disease
  5. DONEPEZIL HYDROCHLORIDE [Concomitant]
     Active Substance: DONEPEZIL HYDROCHLORIDE
     Indication: Parkinson^s disease

REACTIONS (12)
  - Psychiatric symptom [Unknown]
  - Dopamine dysregulation syndrome [Recovering/Resolving]
  - Nightmare [Recovering/Resolving]
  - Dyskinesia [Recovering/Resolving]
  - Off label use [Unknown]
  - Hallucination, visual [Recovering/Resolving]
  - Impulse-control disorder [Recovering/Resolving]
  - Nightmare [Recovered/Resolved]
  - Mania [Not Recovered/Not Resolved]
  - On and off phenomenon [Unknown]
  - Drug dependence [Unknown]
  - Dystonia [Unknown]
